FAERS Safety Report 8964131 (Version 1)
Quarter: 2012Q4

REPORT INFORMATION
  Report Type: 
  Country: HR (occurrence: HR)
  Receive Date: 20121213
  Receipt Date: 20121213
  Transmission Date: 20130627
  Serious: Yes (Other)
  Sender: FDA-Public Use
  Company Number: HR-GLAXOSMITHKLINE-B0851760A

PATIENT
  Age: 65 Year

DRUGS (10)
  1. HYCAMTIN [Suspect]
     Indication: NEOPLASM MALIGNANT
     Dosage: 5MG per day
     Dates: start: 20121105, end: 20121125
  2. GOPTEN [Concomitant]
     Indication: HYPERTENSION
     Dosage: .5MG per day
     Route: 048
  3. SORTIS [Concomitant]
     Route: 048
  4. ANDOL [Concomitant]
     Route: 048
  5. REGLAN [Concomitant]
  6. PROSCAR [Concomitant]
     Dosage: 5MG per day
  7. GLIMEPIRIDE [Concomitant]
     Indication: DIABETES MELLITUS
     Dosage: 4MG per day
     Route: 048
  8. TRAMADOL [Concomitant]
  9. OMNIC [Concomitant]
     Dosage: 4MG per day
  10. DIETARY SUPPLEMENT [Concomitant]

REACTIONS (2)
  - Febrile neutropenia [Recovered/Resolved]
  - VIIth nerve paralysis [Not Recovered/Not Resolved]
